FAERS Safety Report 6739902-X (Version None)
Quarter: 2010Q2

REPORT INFORMATION
  Report Type: 
  Country: None (occurrence: None)
  Receive Date: 20100525
  Receipt Date: 20100512
  Transmission Date: 20101027
  Serious: Yes (Other)
  Sender: FDA-Public Use
  Company Number: US-PFIZER INC-001-0073-M0100252

PATIENT
  Sex: Male
  Weight: 113 kg

DRUGS (5)
  1. DILANTIN-125 [Interacting]
     Indication: CONVULSION
     Dosage: UNK
     Route: 065
  2. DILANTIN-125 [Interacting]
     Indication: EPILEPSY
  3. NEURONTIN [Suspect]
     Indication: NEUROPATHY PERIPHERAL
     Dosage: UNK
  4. PHENOBARBITAL [Concomitant]
     Indication: CONVULSION
     Dosage: UNK
     Route: 065
  5. DIAZEPAM [Concomitant]

REACTIONS (11)
  - ANTICONVULSANT DRUG LEVEL BELOW THERAPEUTIC [None]
  - BRAIN LOBECTOMY [None]
  - CATARACT [None]
  - DIABETES MELLITUS [None]
  - DRUG INTERACTION [None]
  - EYE DISORDER [None]
  - HALLUCINATION, VISUAL [None]
  - NEUROPATHY PERIPHERAL [None]
  - ROAD TRAFFIC ACCIDENT [None]
  - SEXUAL DYSFUNCTION [None]
  - VISUAL IMPAIRMENT [None]
